FAERS Safety Report 11859943 (Version 2)
Quarter: 2017Q3

REPORT INFORMATION
  Report Type: Report from Study
  Country: US (occurrence: US)
  Receive Date: 20151222
  Receipt Date: 20170831
  Transmission Date: 20171127
  Serious: Yes (Hospitalization, Other)
  Sender: FDA-Public Use
  Company Number: US-THERATECHNOLOGIES, INC.-TH-2015-00042

PATIENT
  Age: 58 Year
  Sex: Male
  Weight: 117.6 kg

DRUGS (12)
  1. CYANOCABALAMIN [Concomitant]
     Indication: PROPHYLAXIS
     Dosage: 1 UNK, QD
     Route: 048
     Dates: start: 2014
  2. IBUPROFEN. [Concomitant]
     Active Substance: IBUPROFEN
     Indication: PERICARDITIS
     Dosage: 800 MG MILLIGRAM(S), TID
     Route: 048
     Dates: start: 20150522
  3. TRUVADA [Concomitant]
     Active Substance: EMTRICITABINE\TENOFOVIR DISOPROXIL FUMARATE
     Indication: HIV INFECTION
     Dosage: 1 UNK, QD
     Route: 048
     Dates: start: 20131108
  4. LISINOPRIL. [Concomitant]
     Active Substance: LISINOPRIL
     Indication: HYPERTENSION
     Dosage: 20 MG MILLIGRAM(S), QD
     Route: 048
     Dates: start: 20140930
  5. NO STUDY MEDICATION [Suspect]
     Active Substance: UNSPECIFIED INGREDIENT
     Dosage: UNK UNK, UNK
  6. GINSENG CAP [Concomitant]
     Indication: PROPHYLAXIS
     Dosage: 1 UNK, QD
     Route: 048
     Dates: start: 2014
  7. ALBUTEROL. [Concomitant]
     Active Substance: ALBUTEROL
     Indication: ASTHMA
     Dosage: UNK UNK, UNK
     Route: 055
     Dates: start: 20131029
  8. COLCHICINE. [Concomitant]
     Active Substance: COLCHICINE
     Indication: PERICARDITIS
     Dosage: .6 MG MILLIGRAM(S), BID
     Route: 048
     Dates: start: 20150522
  9. SILDENAFIL. [Concomitant]
     Active Substance: SILDENAFIL
     Indication: ERECTILE DYSFUNCTION
     Dosage: 100 MG MILLIGRAM(S), PRN
     Route: 048
     Dates: start: 20050114
  10. ACETAMINOPHEN. [Concomitant]
     Active Substance: ACETAMINOPHEN
     Indication: OSTEOARTHRITIS
     Dosage: 650 MG MILLIGRAM(S), Q6HR
     Route: 048
     Dates: start: 20100121
  11. NEVIRAPINE. [Concomitant]
     Active Substance: NEVIRAPINE
     Indication: HIV INFECTION
     Dosage: 400 MG MILLIGRAM(S), QD
     Route: 048
     Dates: start: 20131108
  12. CLOTRIMAZOLE CREAM [Concomitant]
     Active Substance: CLOTRIMAZOLE
     Indication: TINEA PEDIS
     Dosage: 1 UNK, QD
     Route: 061
     Dates: start: 2014

REACTIONS (1)
  - Atrial flutter [Recovered/Resolved]

NARRATIVE: CASE EVENT DATE: 20150616
